FAERS Safety Report 15783671 (Version 3)
Quarter: 2019Q1

REPORT INFORMATION
  Report Type: Other
  Country: US (occurrence: US)
  Receive Date: 20190102
  Receipt Date: 20190116
  Transmission Date: 20190417
  Serious: Yes (Death, Hospitalization)
  Sender: FDA-Public Use
  Company Number: US-ACORDA-ACO_155062_2018

PATIENT
  Age: 77 Year
  Sex: Female

DRUGS (2)
  1. COPAXONE [Concomitant]
     Active Substance: GLATIRAMER ACETATE
     Indication: PRODUCT USED FOR UNKNOWN INDICATION
     Dosage: UNK
     Route: 065
     Dates: start: 1982, end: 201811
  2. AMPYRA [Suspect]
     Active Substance: DALFAMPRIDINE
     Indication: MULTIPLE SCLEROSIS
     Dosage: 10 MILLIGRAM Q 12 HRS
     Route: 048
     Dates: start: 20140114, end: 201811

REACTIONS (6)
  - Renal impairment [Unknown]
  - Cystitis [Recovered/Resolved]
  - Back pain [Unknown]
  - Condition aggravated [Unknown]
  - Gait disturbance [Unknown]
  - Atrial fibrillation [Fatal]

NARRATIVE: CASE EVENT DATE: 201810
